FAERS Safety Report 19153787 (Version 3)
Quarter: 2021Q4

REPORT INFORMATION
  Report Type: Report from Study
  Country: AR (occurrence: AR)
  Receive Date: 20210419
  Receipt Date: 20211201
  Transmission Date: 20220304
  Serious: Yes (Other)
  Sender: FDA-Public Use
  Company Number: PHHY2017AR058475

PATIENT
  Sex: Female

DRUGS (2)
  1. ILARIS [Suspect]
     Active Substance: CANAKINUMAB
     Indication: Familial cold autoinflammatory syndrome
     Dosage: 150 MG, QMO
     Route: 058
     Dates: start: 20151013
  2. ILARIS [Suspect]
     Active Substance: CANAKINUMAB
     Indication: Cryopyrin associated periodic syndrome
     Dosage: 150 MG, Q2MO
     Route: 065
     Dates: end: 201703

REACTIONS (13)
  - Hypothermia [Recovered/Resolved]
  - Disease recurrence [Recovered/Resolved]
  - Inflammation [Recovering/Resolving]
  - Pruritus [Unknown]
  - Application site hypersensitivity [Unknown]
  - Inflammation [Recovered/Resolved]
  - Joint swelling [Unknown]
  - Feeling abnormal [Recovered/Resolved]
  - Mobility decreased [Recovered/Resolved]
  - Hypersensitivity [Unknown]
  - Skin reaction [Unknown]
  - Urticaria [Unknown]
  - Vomiting [Recovered/Resolved]

NARRATIVE: CASE EVENT DATE: 20150101
